FAERS Safety Report 12307815 (Version 1)
Quarter: 2016Q2

REPORT INFORMATION
  Report Type: Report from Study
  Country: CO (occurrence: CO)
  Receive Date: 20160426
  Receipt Date: 20160426
  Transmission Date: 20160815
  Serious: Yes (Hospitalization)
  Sender: FDA-Public Use
  Company Number: CO-BIOGEN-2016BI00226534

PATIENT
  Age: 42 Year
  Sex: Male
  Weight: 55 kg

DRUGS (1)
  1. TYSABRI [Suspect]
     Active Substance: NATALIZUMAB
     Indication: PRODUCT USED FOR UNKNOWN INDICATION
     Route: 065
     Dates: start: 20160126, end: 20160126

REACTIONS (2)
  - Muscular weakness [Unknown]
  - Incontinence [Unknown]

NARRATIVE: CASE EVENT DATE: 20160215
